FAERS Safety Report 19823783 (Version 2)
Quarter: 2021Q3

REPORT INFORMATION
  Report Type: Spontaneous
  Country: NL (occurrence: NL)
  Receive Date: 20210913
  Receipt Date: 20210915
  Transmission Date: 20211014
  Serious: Yes (Life-Threatening, Other)
  Sender: FDA-Public Use
  Company Number: NL-MYLANLABS-2021M1061703

PATIENT
  Age: 54 Year
  Sex: Female

DRUGS (1)
  1. ADALIMUMAB [Suspect]
     Active Substance: ADALIMUMAB
     Indication: PSORIATIC ARTHROPATHY
     Dosage: UNK
     Route: 058

REACTIONS (12)
  - Spinal cord injury [Not Recovered/Not Resolved]
  - Pyrexia [Unknown]
  - Pyelonephritis [Unknown]
  - Unevaluable event [Unknown]
  - Resuscitation [Not Recovered/Not Resolved]
  - Chills [Unknown]
  - Intervertebral discitis [Unknown]
  - Skin lesion [Unknown]
  - Demyelination [Not Recovered/Not Resolved]
  - Rheumatic disorder [Unknown]
  - Back pain [Not Recovered/Not Resolved]
  - Osteoarthritis [Not Recovered/Not Resolved]
